FAERS Safety Report 18489857 (Version 3)
Quarter: 2023Q1

REPORT INFORMATION
  Report Type: Report from Study
  Country: CA (occurrence: CA)
  Receive Date: 20201111
  Receipt Date: 20230323
  Transmission Date: 20230417
  Serious: Yes (Hospitalization, Other)
  Sender: FDA-Public Use
  Company Number: CA-NOVARTISPH-PHHY2019CA087831

PATIENT
  Age: 59 Year
  Sex: Female

DRUGS (3)
  1. ILARIS [Suspect]
     Active Substance: CANAKINUMAB
     Indication: Schnitzler^s syndrome
     Dosage: 150 MG, EVERY 5 WEEKS
     Route: 058
     Dates: start: 20190403
  2. ILARIS [Suspect]
     Active Substance: CANAKINUMAB
     Dosage: 150 MG, EVERY 5 WEEKS
     Route: 058
     Dates: start: 20190603
  3. KINERET [Concomitant]
     Active Substance: ANAKINRA
     Indication: Product used for unknown indication
     Dosage: 3 DOSAGE FORM, QD
     Route: 065

REACTIONS (11)
  - Lung neoplasm malignant [Unknown]
  - Schnitzler^s syndrome [Unknown]
  - Chills [Recovered/Resolved]
  - Pyrexia [Recovered/Resolved]
  - Rash [Not Recovered/Not Resolved]
  - Fatigue [Recovered/Resolved]
  - Pain [Recovered/Resolved]
  - Skin plaque [Unknown]
  - Condition aggravated [Unknown]
  - Device difficult to use [Unknown]
  - Product use in unapproved indication [Unknown]

NARRATIVE: CASE EVENT DATE: 20190403
